FAERS Safety Report 22065022 (Version 1)
Quarter: 2023Q1

REPORT INFORMATION
  Report Type: Spontaneous
  Country: TH (occurrence: TH)
  Receive Date: 20230306
  Receipt Date: 20230306
  Transmission Date: 20230417
  Serious: Yes (Other)
  Sender: FDA-Public Use
  Company Number: TH-002147023-NVSC2023TH045497

PATIENT
  Age: 48 Year
  Sex: Male
  Weight: 87 kg

DRUGS (1)
  1. EVEROLIMUS [Suspect]
     Active Substance: EVEROLIMUS
     Indication: Product used for unknown indication
     Dosage: 3 DOSAGE FORM, BID, (0.25)
     Route: 048

REACTIONS (5)
  - Neoplasm malignant [Unknown]
  - Glycosylated haemoglobin increased [Unknown]
  - Toxicity to various agents [Unknown]
  - Blood creatinine increased [Unknown]
  - Infection [Unknown]
